FAERS Safety Report 5987258-2 (Version None)
Quarter: 2008Q4

REPORT INFORMATION
  Report Type: 
  Country: None (occurrence: None)
  Receive Date: 20081209
  Receipt Date: 20081203
  Transmission Date: 20090506
  Serious: Yes (Hospitalization)
  Sender: FDA-Public Use
  Company Number: GR-AVENTIS-200821278GDDC

PATIENT
  Age: 65 Year
  Sex: Female

DRUGS (2)
  1. ARAVA [Suspect]
     Indication: RHEUMATOID ARTHRITIS
     Route: 048
     Dates: start: 20080801, end: 20081126
  2. METHOTREXATE [Concomitant]
     Dates: start: 20080801, end: 20081126

REACTIONS (1)
  - RESPIRATORY FAILURE [None]
